FAERS Safety Report 5129475-X (Version None)
Quarter: 2006Q4

REPORT INFORMATION
  Report Type: 
  Country: None (occurrence: None)
  Receive Date: 20061012
  Receipt Date: 20061002
  Transmission Date: 20070319
  Serious: Yes (Death)
  Sender: FDA-Public Use
  Company Number: 2006000564

PATIENT
  Age: 15 Month
  Sex: Male

DRUGS (1)
  1. METHADONE HYDROCHLORIDE [Suspect]
     Dosage: ORAL
     Route: 048

REACTIONS (7)
  - APNOEA [None]
  - CARDIAC ARREST [None]
  - DRUG SCREEN POSITIVE [None]
  - LOSS OF CONSCIOUSNESS [None]
  - RESPIRATORY ARREST [None]
  - VICTIM OF CHILD ABUSE [None]
  - VICTIM OF HOMICIDE [None]
